FAERS Safety Report 25087646 (Version 2)
Quarter: 2025Q2

REPORT INFORMATION
  Report Type: Spontaneous
  Country: JP (occurrence: JP)
  Receive Date: 20250318
  Receipt Date: 20250424
  Transmission Date: 20250716
  Serious: Yes (Hospitalization, Other)
  Sender: ROCHE
  Company Number: JP-CHUGAI-2025000222

PATIENT
  Age: 82 Year
  Sex: Male
  Weight: 67.6 kg

DRUGS (4)
  1. TECENTRIQ [Suspect]
     Active Substance: ATEZOLIZUMAB
     Indication: Hepatocellular carcinoma
     Dosage: 1200 MILLIGRAM, ONCE/3WEEKS
     Route: 042
     Dates: start: 20241117, end: 20241204
  2. AVASTIN [Suspect]
     Active Substance: BEVACIZUMAB
     Indication: Hepatocellular carcinoma
     Dosage: 1075 MILLIGRAM, ONCE/3WEEKS
     Route: 042
     Dates: start: 20241113, end: 20241204
  3. URSO [Concomitant]
     Active Substance: URSODIOL
     Route: 065
     Dates: start: 20190206
  4. .ALPHA.-TOCOPHEROL ACETATE [Concomitant]
     Active Substance: .ALPHA.-TOCOPHEROL ACETATE
     Route: 065
     Dates: start: 20190206

REACTIONS (4)
  - Portal hypertension [Unknown]
  - Oesophageal varices haemorrhage [Recovered/Resolved]
  - Portal vein thrombosis [Recovering/Resolving]
  - Anaemia [Unknown]

NARRATIVE: CASE EVENT DATE: 20241201
